FAERS Safety Report 8923559 (Version 3)
Quarter: 2013Q4

REPORT INFORMATION
  Report Type: Spontaneous
  Country: US (occurrence: US)
  Receive Date: 20121123
  Receipt Date: 20131118
  Transmission Date: 20140711
  Serious: Yes (Other)
  Sender: FDA-Public Use
  Company Number: US-JNJFOC-20120912460

PATIENT
  Age: 61 Year
  Sex: Male
  Weight: 103 kg

DRUGS (13)
  1. NUCYNTA IR [Suspect]
     Indication: PAIN
     Dosage: EVERY 4-6 HOUR VIA TUBE
     Route: 050
     Dates: start: 20120813, end: 20120822
  2. FENTANYL [Suspect]
     Indication: PAIN
     Dosage: EVERY 72 HOUR
     Route: 062
     Dates: end: 20120816
  3. CELEXA [Suspect]
     Indication: DEPRESSION
     Dosage: DAILY VIA TUBE
     Route: 050
     Dates: end: 20130816
  4. CITALOPRAM [Suspect]
     Indication: DEPRESSION
     Route: 065
  5. TRAZODONE [Suspect]
     Indication: DEPRESSION
     Dosage: VIA TUBE EVERY EVERY NIGHT AT BEDTIME SINCE YEARS
     Route: 065
  6. SAVELLA [Concomitant]
     Indication: DEPRESSION
     Route: 065
  7. HYDROCHLOROTHIAZIDE [Concomitant]
     Route: 065
  8. PREVACID [Concomitant]
     Route: 065
  9. LOPRESSOR [Concomitant]
     Dosage: TWICE DAILY VIA TUBE
     Route: 065
  10. LANTUS INSULIN [Concomitant]
     Route: 058
  11. XANAX [Concomitant]
     Dosage: TWICE DAILY VIA TUBE
     Route: 065
  12. SYNTHROID [Concomitant]
     Dosage: VIA TUBE DAILY
     Route: 065
  13. ZOCOR [Concomitant]
     Dosage: VIA TUBE DAILY
     Route: 065

REACTIONS (1)
  - Serotonin syndrome [Recovered/Resolved]
